FAERS Safety Report 17375909 (Version 7)
Quarter: 2023Q4

REPORT INFORMATION
  Report Type: Spontaneous
  Country: FR (occurrence: FR)
  Receive Date: 20200206
  Receipt Date: 20231226
  Transmission Date: 20240109
  Serious: Yes (Life-Threatening, Hospitalization, Other)
  Sender: FDA-Public Use
  Company Number: FR-MLMSERVICE-20200121-2133054-1

PATIENT
  Age: 71 Year
  Sex: Male

DRUGS (27)
  1. FLUDARABINE [Suspect]
     Active Substance: FLUDARABINE PHOSPHATE
     Indication: Chronic lymphocytic leukaemia
     Dosage: UNK, CYCLICAL
     Route: 065
     Dates: start: 201404
  2. LEVETIRACETAM [Interacting]
     Active Substance: LEVETIRACETAM
     Indication: Epilepsy
     Dosage: UNK
     Route: 065
  3. PREDNISONE [Suspect]
     Active Substance: PREDNISONE
     Indication: Chronic lymphocytic leukaemia recurrent
     Dosage: 0.5 MILLIGRAM/KILOGRAM
     Route: 048
  4. PREDNISONE [Suspect]
     Active Substance: PREDNISONE
     Indication: Chronic lymphocytic leukaemia
  5. CYCLOPHOSPHAMIDE [Suspect]
     Active Substance: CYCLOPHOSPHAMIDE
     Indication: Chronic lymphocytic leukaemia
     Dosage: UNK, ONCE A DAY
     Route: 065
     Dates: start: 201404
  6. IBRUTINIB [Suspect]
     Active Substance: IBRUTINIB
     Indication: Chronic lymphocytic leukaemia
     Dosage: 420 MILLIGRAM, DAILY
     Route: 065
     Dates: start: 201606
  7. LACOSAMIDE [Interacting]
     Active Substance: LACOSAMIDE
     Indication: Epilepsy
     Dosage: UNK
     Route: 065
  8. METHOTREXATE [Suspect]
     Active Substance: METHOTREXATE
     Indication: Chronic lymphocytic leukaemia
     Dosage: 2 MILLIGRAM/SQ. METER HIGH-DOSE 2G/M2)
     Route: 042
  9. METHOTREXATE [Suspect]
     Active Substance: METHOTREXATE
     Indication: Leukaemia recurrent
     Dosage: 2000 MILLIGRAM/SQ. METER, CYCLICAL
     Route: 042
  10. METHOTREXATE [Suspect]
     Active Substance: METHOTREXATE
     Dosage: 2 MILLIGRAM/SQ. METER (HIGH-DOSE 2G/M2)
     Route: 042
  11. RITUXIMAB [Suspect]
     Active Substance: RITUXIMAB
     Indication: Chronic lymphocytic leukaemia
     Dosage: UNK, CYCLICAL
     Route: 065
  12. RITUXIMAB [Suspect]
     Active Substance: RITUXIMAB
     Dosage: 375 MILLIGRAM/SQ. METER (WEEK 21)
     Route: 065
  13. RITUXIMAB [Suspect]
     Active Substance: RITUXIMAB
     Dosage: 500 MILLIGRAM/SQ. METER
     Route: 065
  14. RITUXIMAB [Suspect]
     Active Substance: RITUXIMAB
     Dosage: 375 MILLIGRAM/SQ. METER (WEEK 17)
     Route: 065
  15. RITUXIMAB [Suspect]
     Active Substance: RITUXIMAB
     Dosage: 375 MILLIGRAM/SQ. METER (WEEK 05)
     Route: 065
  16. RITUXIMAB [Suspect]
     Active Substance: RITUXIMAB
     Dosage: 375 MILLIGRAM/SQ. METER (WEEK 09)
     Route: 065
  17. RITUXIMAB [Suspect]
     Active Substance: RITUXIMAB
     Dosage: 375 MILLIGRAM/SQ. METER (375 MG/M2 DAY 1 OF THE FIRST CYCLE, THEN 500MG/M2 DAY)
     Route: 065
  18. RITUXIMAB [Suspect]
     Active Substance: RITUXIMAB
     Dosage: 375 MILLIGRAM/SQ. METER (WEEK 13)
     Route: 065
  19. RITUXIMAB [Suspect]
     Active Substance: RITUXIMAB
     Indication: Chronic lymphocytic leukaemia
     Dosage: UNK, CYCLICAL (1 CYCLE
     Route: 065
     Dates: start: 201404
  20. RITUXIMAB [Suspect]
     Active Substance: RITUXIMAB
     Indication: Leukaemia recurrent
     Dosage: 375 MILLIGRAM/SQ. METER
     Route: 065
  21. VALPROMIDE [Interacting]
     Active Substance: VALPROMIDE
     Indication: Epilepsy
     Dosage: UNK
     Route: 065
  22. VENETOCLAX [Suspect]
     Active Substance: VENETOCLAX
     Indication: Chronic lymphocytic leukaemia
     Dosage: 100 MILLIGRAM, ONCE A DAY
     Route: 048
  23. VENETOCLAX [Suspect]
     Active Substance: VENETOCLAX
     Indication: Leukaemia recurrent
     Dosage: 50 MILLIGRAM, ONCE A DAY
     Route: 048
  24. VENETOCLAX [Suspect]
     Active Substance: VENETOCLAX
     Dosage: 20 MILLIGRAM, ONCE A DAY
     Route: 048
  25. VENETOCLAX [Suspect]
     Active Substance: VENETOCLAX
     Dosage: 200 MILLIGRAM, ONCE A DAY
     Route: 048
  26. PREDNISONE [Concomitant]
     Active Substance: PREDNISONE
     Indication: Chronic lymphocytic leukaemia
     Dosage: 0.5 MILLIGRAM/KILOGRAM, ONCE A DAY
     Route: 048
  27. PREDNISONE [Concomitant]
     Active Substance: PREDNISONE
     Indication: Leukaemia recurrent
     Dosage: PROGRESSIVELY TAPERED.
     Route: 048

REACTIONS (9)
  - Chronic lymphocytic leukaemia recurrent [Unknown]
  - Neutropenia [Recovered/Resolved]
  - Neurological symptom [Recovered/Resolved with Sequelae]
  - Chronic lymphocytic leukaemia [Recovered/Resolved]
  - Therapeutic product effect incomplete [Unknown]
  - Drug interaction [Unknown]
  - Cytopenia [Unknown]
  - Thrombocytopenia [Unknown]
  - Anaemia [Unknown]
